FAERS Safety Report 13572450 (Version 5)
Quarter: 2017Q3

REPORT INFORMATION
  Report Type: Spontaneous
  Country: JP (occurrence: JP)
  Receive Date: 20170523
  Receipt Date: 20170811
  Transmission Date: 20171127
  Serious: Yes (Other)
  Sender: FDA-Public Use
  Company Number: PHJP2017JP016510

PATIENT
  Sex: Male

DRUGS (4)
  1. MYDRIN [Concomitant]
     Indication: MYDRIASIS
     Dosage: UNK, QD
     Route: 065
     Dates: start: 20170216, end: 20170221
  2. NEVANAC [Suspect]
     Active Substance: NEPAFENAC
     Indication: EYE INFLAMMATION
     Dosage: UNK, QID
     Route: 047
     Dates: start: 20170215, end: 20170221
  3. RINDERON V [Concomitant]
     Active Substance: BETAMETHASONE VALERATE
     Indication: EYE INFLAMMATION
     Dosage: UNK, QID
     Route: 047
     Dates: start: 20170217, end: 20170523
  4. TARIVID [Concomitant]
     Active Substance: OFLOXACIN
     Indication: INFECTION PROPHYLAXIS
     Dosage: UNK, QID
     Route: 047
     Dates: start: 20170217, end: 20170523

REACTIONS (10)
  - Conjunctival oedema [Unknown]
  - Foreign body sensation in eyes [Unknown]
  - Narrow anterior chamber angle [Unknown]
  - Wound dehiscence [Recovered/Resolved]
  - Corneal epithelium defect [Unknown]
  - Aqueous humour leakage [Unknown]
  - Ulcerative keratitis [Recovered/Resolved]
  - Ocular hyperaemia [Unknown]
  - Eye pain [Unknown]
  - Corneal disorder [Unknown]

NARRATIVE: CASE EVENT DATE: 20170216
